FAERS Safety Report 5910492-4 (Version None)
Quarter: 2008Q4

REPORT INFORMATION
  Report Type: 
  Country: None (occurrence: None)
  Receive Date: 20081007
  Receipt Date: 20080130
  Transmission Date: 20090506
  Serious: No
  Sender: FDA-Public Use
  Company Number: US-ASTRAZENECA-2008UW02146

PATIENT
  Sex: Female

DRUGS (4)
  1. ARIMIDEX [Suspect]
     Route: 048
  2. PLAQUENIL [Concomitant]
  3. SIMVASTATIN [Concomitant]
  4. CYCLOBENZAPRINE HCL [Concomitant]

REACTIONS (1)
  - MUSCULOSKELETAL DISCOMFORT [None]
